FAERS Safety Report 7851890-1 (Version None)
Quarter: 2011Q4

REPORT INFORMATION
  Report Type: 
  Country: None (occurrence: None)
  Receive Date: 20111026
  Receipt Date: 20111018
  Transmission Date: 20120403
  Serious: Yes (Death)
  Sender: FDA-Public Use
  Company Number: DK-PFIZER INC-2011256685

PATIENT
  Age: 69 Year
  Sex: Female

DRUGS (10)
  1. CIPROFLOXACIN [Concomitant]
  2. CODEINE [Concomitant]
  3. IBUPROFEN [Concomitant]
  4. WARFARIN [Concomitant]
  5. ATORVASTATIN [Concomitant]
  6. CORDARONE [Suspect]
     Indication: ATRIAL FIBRILLATION
     Dosage: 200 MG, DAILY
     Route: 048
  7. ZOPICLONE [Concomitant]
  8. METOCLOPRAMIDE [Concomitant]
  9. PAMOL [Concomitant]
  10. FEXOFENADINE HCL [Concomitant]

REACTIONS (2)
  - ARRHYTHMIA [None]
  - TOXICITY TO VARIOUS AGENTS [None]
